FAERS Safety Report 9845570 (Version 1)
Quarter: 2013Q4

REPORT INFORMATION
  Report Type: Spontaneous
  Country: US (occurrence: None)
  Receive Date: 20131219
  Receipt Date: 20131219
  Transmission Date: 20140711
  Serious: Yes (Other)
  Sender: FDA-Public Use
  Company Number: 163-20785-13092246

PATIENT
  Age: 78 Year
  Sex: Male

DRUGS (5)
  1. THALOMID (THALIDOMIDE) (50 MILLIGRAM, CAPSULES) [Suspect]
     Indication: PLASMA CELL MYELOMA
     Dosage: 50 MG, Q EVENING , PO
     Route: 048
     Dates: start: 201110, end: 20130906
  2. DEPOT TESTOSTERONE (TESTOSTERONE) CIPIONATE) [Concomitant]
  3. HYDROXYUREA (HYDROXYURIA) [Concomitant]
  4. VENLAFAXINE (VENLAFAXINE) [Concomitant]
  5. TRAZODONE  (TRAZODONE) [Concomitant]

REACTIONS (1)
  - Acute leukaemia [None]
